FAERS Safety Report 6010203-0 (Version None)
Quarter: 2008Q4

REPORT INFORMATION
  Report Type: 
  Country: None (occurrence: None)
  Receive Date: 20081218
  Receipt Date: 20071109
  Transmission Date: 20090506
  Serious: No
  Sender: FDA-Public Use
  Company Number: A0693597A

PATIENT
  Age: 69 Year
  Sex: Female

DRUGS (1)
  1. FLONASE [Suspect]
     Dosage: 2SPR PER DAY
     Route: 045

REACTIONS (6)
  - DRUG INEFFECTIVE [None]
  - ILL-DEFINED DISORDER [None]
  - MOUTH ULCERATION [None]
  - NASAL CONGESTION [None]
  - OROPHARYNGEAL PAIN [None]
  - RHINORRHOEA [None]
